FAERS Safety Report 8912819 (Version 1)
Quarter: 2012Q4

REPORT INFORMATION
  Report Type: 
  Country: US (occurrence: US)
  Receive Date: 20121116
  Receipt Date: 20121116
  Transmission Date: 20130627
  Serious: Yes (Other)
  Sender: FDA-Public Use
  Company Number: US-PFIZER INC-2011US-46658

PATIENT
  Age: 66 Year
  Sex: Female
  Weight: 86 kg

DRUGS (8)
  1. CALAN SR [Suspect]
     Indication: HYPERTENSION
     Dosage: 240 mg, 1x/day
     Route: 065
  2. CALAN SR [Suspect]
     Dosage: 120 mg, 1x/day
     Route: 065
     Dates: start: 2006
  3. VERAPAMIL [Suspect]
     Indication: PALPITATIONS
     Dosage: UNK
     Route: 065
  4. VERAPAMIL [Suspect]
     Indication: HYPERTENSION
  5. CORTISONE [Suspect]
     Indication: PALPITATIONS
     Dosage: 180 mg, UNK
     Route: 065
  6. CORTISONE [Suspect]
     Indication: HYPERTENSION
     Route: 065
  7. ARIMIDEX [Suspect]
     Indication: BREAST CANCER
     Dosage: UNK, 1x/day
     Route: 048
  8. LEVOXYL [Concomitant]
     Dosage: UNK

REACTIONS (3)
  - Breast cancer [Unknown]
  - Ventricular extrasystoles [Unknown]
  - Drug ineffective [Unknown]
